FAERS Safety Report 8765684 (Version 2)
Quarter: 2012Q4

REPORT INFORMATION
  Report Type: 
  Country: US (occurrence: US)
  Receive Date: 20120903
  Receipt Date: 20120927
  Transmission Date: 20130627
  Serious: Yes (Other)
  Sender: FDA-Public Use
  Company Number: PHEH2012US017057

PATIENT
  Sex: Male

DRUGS (2)
  1. TEKTURNA [Suspect]
     Dosage: UNK UKN, UNK
  2. GLEEVEC [Concomitant]
     Dosage: UNK UKN, UNK

REACTIONS (3)
  - Platelet count increased [Unknown]
  - Cough [Unknown]
  - Blood pressure increased [Unknown]
